FAERS Safety Report 14831977 (Version 2)
Quarter: 2018Q2

REPORT INFORMATION
  Report Type: Spontaneous
  Country: US (occurrence: US)
  Receive Date: 20180501
  Receipt Date: 20180512
  Transmission Date: 20180711
  Serious: Yes (Other)
  Sender: FDA-Public Use
  Company Number: US-CONCORDIA PHARMACEUTICALS INC.-GSH201804-001447

PATIENT
  Age: 75 Year
  Sex: Male

DRUGS (1)
  1. DIGOXIN. [Suspect]
     Active Substance: DIGOXIN
     Indication: ISCHAEMIC CARDIOMYOPATHY

REACTIONS (2)
  - Toxicity to various agents [Unknown]
  - Intestinal ischaemia [Unknown]
